FAERS Safety Report 8381788-4 (Version None)
Quarter: 2012Q2

REPORT INFORMATION
  Report Type: 
  Country: None (occurrence: None)
  Receive Date: 20120522
  Receipt Date: 20120522
  Transmission Date: 20120825
  Serious: Yes (Hospitalization, Disabling, Other)
  Sender: FDA-Public Use
  Company Number: None

PATIENT
  Age: 14 Year
  Sex: Male
  Weight: 74.8435 kg

DRUGS (2)
  1. ADDERALL 30 [Suspect]
     Indication: ATTENTION DEFICIT/HYPERACTIVITY DISORDER
     Dosage: 1 DAY PO
     Route: 048
  2. VYVANSE [Suspect]
     Indication: ATTENTION DEFICIT/HYPERACTIVITY DISORDER
     Dosage: 1 DAY PO
     Route: 048

REACTIONS (8)
  - MANIA [None]
  - ABNORMAL BEHAVIOUR [None]
  - ANGER [None]
  - IRRITABILITY [None]
  - AGITATION [None]
  - DRUG INEFFECTIVE [None]
  - AGGRESSION [None]
  - DEPRESSION [None]
